FAERS Safety Report 8827890 (Version 1)
Quarter: 2012Q4

REPORT INFORMATION
  Report Type: 
  Country: IT (occurrence: IT)
  Receive Date: 20121005
  Receipt Date: 20121005
  Transmission Date: 20130627
  Serious: Yes (Hospitalization)
  Sender: FDA-Public Use
  Company Number: IT-TEVA-361722ISR

PATIENT
  Age: 82 Year
  Sex: Female

DRUGS (9)
  1. LORAZEPAM [Suspect]
     Indication: INSOMNIA
     Dosage: 2.5 Milligram Daily;
     Route: 048
     Dates: start: 20120823, end: 20120926
  2. SEROQUEL [Suspect]
     Indication: HALLUCINATION
     Dosage: 100 Milligram Daily;
     Route: 048
     Dates: start: 20120817, end: 20120925
  3. PANTOPRAZOLO [Concomitant]
     Dosage: 20 Milligram Daily;
  4. COUMADIN [Concomitant]
     Route: 048
  5. LASIX [Concomitant]
     Dosage: 12.5 Milligram Daily;
     Route: 048
  6. NAPRILENE [Concomitant]
     Dosage: 5 Milligram Daily;
     Route: 048
  7. NITROSYLON [Concomitant]
     Route: 062
  8. EPARGRISEOVIT [Concomitant]
     Dates: start: 20120716, end: 20120927
  9. ACTRAPHANE [Concomitant]
     Dosage: 20 IU (International Unit) Daily;
     Route: 058

REACTIONS (2)
  - Drop attacks [Recovering/Resolving]
  - Spinal fracture [Recovering/Resolving]
